FAERS Safety Report 4429216-5 (Version None)
Quarter: 2004Q3

REPORT INFORMATION
  Report Type: 
  Country: None (occurrence: None)
  Receive Date: 20040819
  Receipt Date: 20040421
  Transmission Date: 20050211
  Serious: Yes (Hospitalization)
  Sender: FDA-Public Use
  Company Number: 200411463JP

PATIENT
  Age: 60 Year
  Sex: Female
  Weight: 49 kg

DRUGS (11)
  1. ARAVA [Suspect]
     Indication: RHEUMATOID ARTHRITIS
     Route: 048
     Dates: start: 20031108, end: 20031202
  2. PREDNISOLONE [Concomitant]
     Indication: RHEUMATOID ARTHRITIS
     Route: 048
  3. ALFAROL [Concomitant]
     Indication: OSTEOPOROSIS
     Route: 048
  4. THYRADIN S [Concomitant]
     Indication: HYPOTHYROIDISM
     Route: 048
  5. FLUITRAN [Concomitant]
     Indication: HYPERTENSION
     Route: 048
     Dates: start: 20040106
  6. JUVELA NICOTINATE [Concomitant]
     Indication: PERIPHERAL VASCULAR DISORDER
     Route: 048
  7. GASTER [Concomitant]
     Indication: GASTRIC ULCER
     Route: 048
  8. CALSLOT [Concomitant]
     Indication: HYPERTENSION
     Route: 048
     Dates: start: 20031217, end: 20031222
  9. BIOFERMIN [Concomitant]
     Indication: DIARRHOEA
     Route: 048
     Dates: start: 20040202, end: 20040210
  10. CLINORIL [Concomitant]
     Indication: MUSCULOSKELETAL PAIN
     Route: 048
  11. NORVASC [Concomitant]
     Indication: HYPERTENSION
     Route: 048
     Dates: start: 20031119, end: 20031216

REACTIONS (17)
  - ALANINE AMINOTRANSFERASE INCREASED [None]
  - ASPARTATE AMINOTRANSFERASE INCREASED [None]
  - BILIRUBIN CONJUGATED INCREASED [None]
  - BLOOD ALKALINE PHOSPHATASE INCREASED [None]
  - BLOOD BILIRUBIN INCREASED [None]
  - BLOOD LACTATE DEHYDROGENASE INCREASED [None]
  - BLOOD PRESSURE INCREASED [None]
  - CHROMATURIA [None]
  - DIARRHOEA [None]
  - ENTERITIS [None]
  - GAMMA-GLUTAMYLTRANSFERASE INCREASED [None]
  - JAUNDICE CHOLESTATIC [None]
  - LYMPHOCYTE COUNT DECREASED [None]
  - MALAISE [None]
  - NEUTROPHIL COUNT INCREASED [None]
  - NIGHT SWEATS [None]
  - PYREXIA [None]
